FAERS Safety Report 18393206 (Version 1)
Quarter: 2020Q4

REPORT INFORMATION
  Report Type: Spontaneous
  Country: CN (occurrence: CN)
  Receive Date: 20201016
  Receipt Date: 20201016
  Transmission Date: 20210114
  Serious: Yes (Other)
  Sender: FDA-Public Use
  Company Number: CN-PFIZER INC-2020399048

PATIENT
  Age: 4 Month
  Sex: Male
  Weight: 9.5 kg

DRUGS (2)
  1. ZITHROMAX [Suspect]
     Active Substance: AZITHROMYCIN DIHYDRATE
     Indication: BRONCHITIS
     Dosage: 0.09 G, 1X/DAY
     Route: 048
     Dates: start: 20201012, end: 20201012
  2. FU FANG CHUAN BEI JING PIAN [Concomitant]
     Indication: PRODUCTIVE COUGH
     Dosage: 0.5 G, 3X/DAY
     Route: 048
     Dates: start: 20201012, end: 20201012

REACTIONS (2)
  - Infantile vomiting [Recovering/Resolving]
  - Faecal vomiting [Recovering/Resolving]

NARRATIVE: CASE EVENT DATE: 20201012
